FAERS Safety Report 4579519-9 (Version None)
Quarter: 2005Q1

REPORT INFORMATION
  Report Type: 
  Country: None (occurrence: None)
  Receive Date: 20050210
  Receipt Date: 20050131
  Transmission Date: 20050727
  Serious: Yes (Other)
  Sender: FDA-Public Use
  Company Number: CHPA2003US02244

PATIENT
  Sex: Female

DRUGS (3)
  1. EX-LAX LAXATIVE UNKNOWN FORMULA (NCH) (UNKNOWN) UNKNOWN [Suspect]
     Dosage: ORAL
     Route: 048
     Dates: start: 19930101
  2. CORRECTOL [Suspect]
     Dosage: ORAL
     Route: 048
     Dates: start: 19930101
  3. FEEN-A-MINT (PHENOLPHTHALEIN) [Suspect]
     Dosage: ORAL
     Route: 048
     Dates: start: 19930101

REACTIONS (11)
  - ABDOMINAL DISTENSION [None]
  - ABDOMINAL PAIN UPPER [None]
  - DRUG DEPENDENCE [None]
  - DUODENITIS [None]
  - ECONOMIC PROBLEM [None]
  - ELECTROLYTE IMBALANCE [None]
  - EMOTIONAL DISORDER [None]
  - GASTRIC ULCER [None]
  - GASTRITIS [None]
  - INJURY [None]
  - NAUSEA [None]
